FAERS Safety Report 5341990-2 (Version None)
Quarter: 2007Q2

REPORT INFORMATION
  Report Type: 
  Country: None (occurrence: None)
  Receive Date: 20070530
  Receipt Date: 20070530
  Transmission Date: 20071010
  Serious: Yes (Hospitalization)
  Sender: FDA-Public Use
  Company Number: None

PATIENT
  Age: 47 Year
  Sex: Male

DRUGS (2)
  1. MEPERIDINE HCL [Suspect]
     Indication: ECHOCARDIOGRAM
     Dates: start: 20070418, end: 20070418
  2. MEPERIDINE HCL [Suspect]
     Indication: SEDATIVE THERAPY
     Dates: start: 20070418, end: 20070418

REACTIONS (3)
  - AGITATION [None]
  - PROCEDURAL COMPLICATION [None]
  - RESPIRATORY DEPRESSION [None]
